FAERS Safety Report 15500873 (Version 2)
Quarter: 2018Q4

REPORT INFORMATION
  Report Type: Report from Study
  Country: ZA (occurrence: ZA)
  Receive Date: 20181015
  Receipt Date: 20181112
  Transmission Date: 20190205
  Serious: Yes (Other)
  Sender: FDA-Public Use
  Company Number: ZA-MYLANLABS-2018M1074517

PATIENT
  Age: 37 Year
  Sex: Male

DRUGS (33)
  1. LINEZOLID. [Suspect]
     Active Substance: LINEZOLID
     Dosage: 300 MG, QD
     Route: 048
     Dates: start: 20180822
  2. PYRAZINAMIDE. [Suspect]
     Active Substance: PYRAZINAMIDE
     Indication: TUBERCULOSIS
     Dosage: 1.5 G, QD
     Route: 048
     Dates: start: 20171010, end: 20180813
  3. NEVIRAPINE. [Concomitant]
     Active Substance: NEVIRAPINE
     Indication: PRODUCT USED FOR UNKNOWN INDICATION
     Dosage: UNK
  4. LEVOFLOXACIN. [Suspect]
     Active Substance: LEVOFLOXACIN
     Indication: TUBERCULOSIS
     Dosage: 750 MG, QD
     Route: 048
     Dates: start: 20180725, end: 20180813
  5. PAS [Suspect]
     Active Substance: AMINOSALICYLIC ACID
     Indication: TUBERCULOSIS
     Dosage: 8 G, QD
     Dates: start: 20180806, end: 20180920
  6. ETHAMBUTOL [Suspect]
     Active Substance: ETHAMBUTOL HYDROCHLORIDE
     Dosage: 800 MG, QD
     Route: 048
     Dates: start: 20180903
  7. SLOW-MAG [Concomitant]
     Active Substance: MAGNESIUM CHLORIDE
     Indication: PRODUCT USED FOR UNKNOWN INDICATION
     Dosage: UNK
  8. SLOW-K [Concomitant]
     Active Substance: POTASSIUM CHLORIDE
     Indication: PRODUCT USED FOR UNKNOWN INDICATION
     Dosage: UNK
  9. TERIZIDONE [Suspect]
     Active Substance: TERIZIDONE
     Dosage: 500 MG, PM
     Route: 048
     Dates: start: 20180831
  10. INH [Suspect]
     Active Substance: ISONIAZID
     Indication: TUBERCULOSIS
     Dosage: 600 MG, QD
     Route: 048
     Dates: start: 20171010, end: 20180926
  11. LINEZOLID. [Suspect]
     Active Substance: LINEZOLID
     Indication: TUBERCULOSIS
     Dosage: 300 MG, QD
     Route: 048
     Dates: start: 20180806, end: 20180813
  12. LEVOFLOXACIN. [Suspect]
     Active Substance: LEVOFLOXACIN
     Dosage: 750 MG, QD
     Route: 048
     Dates: start: 20180827
  13. CLOFAZIMINE [Suspect]
     Active Substance: CLOFAZIMINE
     Dosage: 100 MG, QD
     Route: 048
     Dates: start: 20180824
  14. BEDAQUILINE [Suspect]
     Active Substance: BEDAQUILINE
     Dosage: 200 MG, 3XW
     Route: 048
     Dates: start: 20180820
  15. ETHAMBUTOL [Suspect]
     Active Substance: ETHAMBUTOL HYDROCHLORIDE
     Indication: TUBERCULOSIS
     Dosage: 800 MG, QD
     Route: 048
     Dates: start: 20171010, end: 20180813
  16. LANSOPRAZOLE. [Concomitant]
     Active Substance: LANSOPRAZOLE
     Indication: PRODUCT USED FOR UNKNOWN INDICATION
     Dosage: UNK
  17. MAXOLON [Concomitant]
     Active Substance: METOCLOPRAMIDE HYDROCHLORIDE
     Indication: PRODUCT USED FOR UNKNOWN INDICATION
     Dosage: UNK
  18. ETHAMBUTOL [Suspect]
     Active Substance: ETHAMBUTOL HYDROCHLORIDE
     Dosage: UNK
  19. PYRAZINAMIDE. [Suspect]
     Active Substance: PYRAZINAMIDE
     Dosage: UNK
  20. PYRIDOXINE [Concomitant]
     Active Substance: PYRIDOXINE
     Indication: PRODUCT USED FOR UNKNOWN INDICATION
     Dosage: UNK
  21. CLOFAZIMINE [Suspect]
     Active Substance: CLOFAZIMINE
     Dosage: UNK
  22. DELAMANID [Suspect]
     Active Substance: DELAMANID
     Dosage: UNK
  23. BEDAQUILINE [Suspect]
     Active Substance: BEDAQUILINE
     Indication: TUBERCULOSIS
     Dosage: 200 MG, 3X
     Route: 048
     Dates: start: 20180118, end: 20180813
  24. BEDAQUILINE [Suspect]
     Active Substance: BEDAQUILINE
     Dosage: UNK
  25. LINEZOLID. [Suspect]
     Active Substance: LINEZOLID
     Dosage: UNK
  26. PYRAZINAMIDE. [Suspect]
     Active Substance: PYRAZINAMIDE
     Dosage: 1.5 G, QD
     Route: 048
     Dates: start: 20180903
  27. LEVOFLOXACIN. [Suspect]
     Active Substance: LEVOFLOXACIN
     Dosage: UNK
  28. CLOFAZIMINE [Suspect]
     Active Substance: CLOFAZIMINE
     Indication: TUBERCULOSIS
     Dosage: 100 MG, QD
     Route: 048
     Dates: start: 20171010, end: 20180813
  29. DELAMANID [Suspect]
     Active Substance: DELAMANID
     Indication: TUBERCULOSIS
     Dosage: 100 MG, BID
     Route: 048
     Dates: start: 20180806, end: 20180813
  30. EMTRICITABINE W/TENOFOVIR [Concomitant]
     Active Substance: EMTRICITABINE\TENOFOVIR DISOPROXIL
     Indication: PRODUCT USED FOR UNKNOWN INDICATION
     Dosage: UNK
  31. DELAMANID [Suspect]
     Active Substance: DELAMANID
     Dosage: 100 MG, BID
     Route: 048
     Dates: start: 20180817
  32. TERIZIDONE [Suspect]
     Active Substance: TERIZIDONE
     Indication: TUBERCULOSIS
     Dosage: 500 MG, QD
     Route: 048
     Dates: start: 20180725, end: 20180926
  33. ETHIONAMIDE [Suspect]
     Active Substance: ETHIONAMIDE
     Indication: TUBERCULOSIS
     Dosage: 500 MG, QD
     Dates: start: 20180725, end: 20180920

REACTIONS (3)
  - Vomiting [Recovered/Resolved]
  - Secondary syphilis [Recovered/Resolved]
  - Psychotic disorder [Recovered/Resolved]

NARRATIVE: CASE EVENT DATE: 20180811
